FAERS Safety Report 9523140 (Version 2)
Quarter: 2013Q3

REPORT INFORMATION
  Report Type: Spontaneous
  Country: JP (occurrence: JP)
  Receive Date: 20130913
  Receipt Date: 20130917
  Transmission Date: 20140515
  Serious: Yes (Death)
  Sender: FDA-Public Use
  Company Number: JP-JNJFOC-20130904985

PATIENT
  Age: 18 Year
  Sex: Male

DRUGS (9)
  1. DOXORUBICIN HYDROCHLORIDE [Suspect]
     Indication: DESMOPLASTIC SMALL ROUND CELL TUMOUR
     Route: 042
  2. DOXORUBICIN [Suspect]
     Indication: DESMOPLASTIC SMALL ROUND CELL TUMOUR
     Route: 065
  3. CARBOPLATIN [Suspect]
     Indication: DESMOPLASTIC SMALL ROUND CELL TUMOUR
     Route: 065
  4. PACLITAXEL [Suspect]
     Indication: DESMOPLASTIC SMALL ROUND CELL TUMOUR
     Route: 065
  5. VINCRISTINE [Suspect]
     Indication: DESMOPLASTIC SMALL ROUND CELL TUMOUR
     Route: 065
  6. CYCLOPHOSPHAMIDE [Suspect]
     Indication: DESMOPLASTIC SMALL ROUND CELL TUMOUR
     Route: 065
  7. IFOSFAMIDE [Suspect]
     Indication: DESMOPLASTIC SMALL ROUND CELL TUMOUR
     Route: 065
  8. ETOPOSIDE [Suspect]
     Indication: DESMOPLASTIC SMALL ROUND CELL TUMOUR
     Route: 065
  9. IRINOTECAN [Suspect]
     Indication: DESMOPLASTIC SMALL ROUND CELL TUMOUR
     Route: 065

REACTIONS (2)
  - Death [Fatal]
  - Off label use [Unknown]
